FAERS Safety Report 4922653-1 (Version None)
Quarter: 2006Q1

REPORT INFORMATION
  Report Type: 
  Country: None (occurrence: None)
  Receive Date: 20060224
  Receipt Date: 20060130
  Transmission Date: 20060701
  Serious: Yes (Hospitalization)
  Sender: FDA-Public Use
  Company Number: GBWYE354001FEB06

PATIENT
  Sex: Female
  Weight: 66.74 kg

DRUGS (5)
  1. ENBREL [Suspect]
     Indication: RHEUMATOID ARTHRITIS
     Route: 058
     Dates: start: 20051021
  2. PREDNISOLONE [Concomitant]
     Indication: RHEUMATOID ARTHRITIS
     Dosage: 5MG FREQUENCY UNKNOWN
     Route: 048
  3. CALCICHEW-D3 FORTE [Concomitant]
     Indication: CALCIUM DEFICIENCY
     Route: 048
  4. FOLIC ACID [Concomitant]
     Indication: HYPOVITAMINOSIS
     Route: 048
  5. METHOTREXATE [Concomitant]

REACTIONS (4)
  - BODY TEMPERATURE INCREASED [None]
  - DEHYDRATION [None]
  - HEADACHE [None]
  - VOMITING [None]
